FAERS Safety Report 5230097-0 (Version None)
Quarter: 2007Q1

REPORT INFORMATION
  Report Type: 
  Country: None (occurrence: None)
  Receive Date: 20070206
  Receipt Date: 20060622
  Transmission Date: 20070707
  Serious: No
  Sender: FDA-Public Use
  Company Number: US-GLAXOSMITHKLINE-A0610036A

PATIENT
  Age: 45 Year
  Sex: Female

DRUGS (4)
  1. PAXIL CR [Suspect]
     Indication: DEPRESSION
     Dosage: 25MG PER DAY
     Route: 048
     Dates: start: 20051101
  2. TOPAMAX [Concomitant]
  3. AMERGE [Concomitant]
  4. CENESTIN [Concomitant]

REACTIONS (2)
  - EXOPHTHALMOS [None]
  - EYELID PTOSIS [None]
